FAERS Safety Report 4315436-7 (Version None)
Quarter: 2004Q1

REPORT INFORMATION
  Report Type: 
  Country: None (occurrence: None)
  Receive Date: 20040309
  Receipt Date: 20040219
  Transmission Date: 20041129
  Serious: Yes (Other)
  Sender: FDA-Public Use
  Company Number: USA040259873

PATIENT
  Age: 14 Year
  Sex: Male
  Weight: 71 kg

DRUGS (4)
  1. STRATTERA [Suspect]
     Indication: ATTENTION DEFICIT/HYPERACTIVITY DISORDER
     Dosage: 40 MG/D
     Dates: start: 20031211
  2. DEPAKOTE [Concomitant]
  3. EFFEXOR XR [Concomitant]
  4. SEROQUEL [Concomitant]

REACTIONS (1)
  - SYNCOPE [None]
